FAERS Safety Report 6269069-6 (Version None)
Quarter: 2009Q3

REPORT INFORMATION
  Report Type: 
  Country: None (occurrence: None)
  Receive Date: 20090714
  Receipt Date: 20090714
  Transmission Date: 20100115
  Serious: Yes (Other)
  Sender: FDA-Public Use
  Company Number: None

PATIENT
  Age: 36 Year
  Sex: Female
  Weight: 102.0593 kg

DRUGS (1)
  1. YAZ [Suspect]
     Indication: PREMENSTRUAL SYNDROME
     Dosage: ONE PILL ONE TIME A DAY PO
     Route: 048
     Dates: start: 20071220, end: 20090328

REACTIONS (6)
  - GENITAL INFECTION BACTERIAL [None]
  - GENITAL INFECTION FUNGAL [None]
  - LIBIDO DECREASED [None]
  - VAGINAL DISCHARGE [None]
  - VULVOVAGINAL PRURITUS [None]
  - WEIGHT INCREASED [None]
